FAERS Safety Report 5233520-0 (Version None)
Quarter: 2007Q1

REPORT INFORMATION
  Report Type: 
  Country: None (occurrence: None)
  Receive Date: 20070208
  Receipt Date: 20070131
  Transmission Date: 20070707
  Serious: Yes (Hospitalization)
  Sender: FDA-Public Use
  Company Number: DK-ELI_LILLY_AND_COMPANY-DK200702000047

PATIENT
  Age: 1 Day
  Weight: 4 kg

DRUGS (1)
  1. OLANZAPINE [Suspect]
     Dosage: UNK, DAILY (1/D)
     Route: 064
     Dates: start: 20051108

REACTIONS (4)
  - DRUG EXPOSURE DURING PREGNANCY [None]
  - DRUG EXPOSURE VIA BREAST MILK [None]
  - FEEDING DISORDER NEONATAL [None]
  - MALAISE [None]
